FAERS Safety Report 7981737 (Version 2)
Quarter: 2012Q4

REPORT INFORMATION
  Report Type: 
  Country: CA (occurrence: CA)
  Receive Date: 20110608
  Receipt Date: 20121111
  Transmission Date: 20130627
  Serious: Yes (Death, Hospitalization)
  Sender: FDA-Public Use
  Company Number: PHMT2006CA01895

PATIENT
  Sex: Female

DRUGS (3)
  1. SANDOSTATIN LAR [Suspect]
     Indication: HEPATIC NEOPLASM MALIGNANT
     Dosage: 20 mg, QMO
     Dates: start: 20031008, end: 20061101
  2. ADALAT XL [Concomitant]
  3. NOVO-HYDROXYZIN [Concomitant]

REACTIONS (10)
  - Death [Fatal]
  - Portal vein occlusion [Unknown]
  - Pulmonary hypertension [Unknown]
  - Heart rate increased [Unknown]
  - Injection site pain [Unknown]
  - Hyperglycaemia [Unknown]
  - Tachycardia [Unknown]
  - Fatigue [Unknown]
  - Injection site reaction [Unknown]
  - Blood pressure diastolic increased [Unknown]
